FAERS Safety Report 4986792-1 (Version None)
Quarter: 2006Q2

REPORT INFORMATION
  Report Type: 
  Country: None (occurrence: None)
  Receive Date: 20060428
  Receipt Date: 20060320
  Transmission Date: 20061013
  Serious: Yes (Hospitalization)
  Sender: FDA-Public Use
  Company Number: US-MERCK-0603USA03152

PATIENT
  Age: 58 Year
  Sex: Female
  Weight: 114 kg

DRUGS (2)
  1. VIOXX [Suspect]
     Indication: MONARTHRITIS
     Route: 048
     Dates: start: 20000101, end: 20040101
  2. DILANTIN [Concomitant]
     Route: 065

REACTIONS (3)
  - BACK DISORDER [None]
  - CEREBROVASCULAR ACCIDENT [None]
  - LEUKAEMIA [None]
